FAERS Safety Report 9711951 (Version 1)
Quarter: 2013Q4

REPORT INFORMATION
  Report Type: Spontaneous
  Country: US (occurrence: None)
  Receive Date: 20131125
  Receipt Date: 20131125
  Transmission Date: 20140711
  Serious: Yes (Other)
  Sender: FDA-Public Use
  Company Number: None

PATIENT
  Age: 40 Year
  Sex: Female
  Weight: 111.13 kg

DRUGS (1)
  1. MICONAZOLE NITRATE [Suspect]
     Indication: VULVOVAGINAL MYCOTIC INFECTION
     Dosage: 1 DOSE  AT BEDTIME  VAGINAL
     Route: 067
     Dates: start: 20131121, end: 20131121

REACTIONS (5)
  - Hypersensitivity [None]
  - Application site swelling [None]
  - Application site pruritus [None]
  - Application site pain [None]
  - Application site haemorrhage [None]
